FAERS Safety Report 6470492-5 (Version None)
Quarter: 2009Q4

REPORT INFORMATION
  Report Type: 
  Country: None (occurrence: None)
  Receive Date: 20091201
  Receipt Date: 20091117
  Transmission Date: 20100525
  Serious: Yes (Hospitalization)
  Sender: FDA-Public Use
  Company Number: DSJ-2009-15416

PATIENT
  Age: 66 Year
  Sex: Male

DRUGS (6)
  1. OLMESARTAN MEDOXOMIL [Suspect]
     Dosage: 40 MG, PER ORAL
     Route: 048
  2. DILTIAZEM HYDROCHLORIDE [Suspect]
     Dosage: 200 MG, PER ORAL
     Route: 048
  3. BISOPROLOL FUMARATE [Suspect]
     Dosage: 10 MG, PER ORAL
     Route: 048
  4. NIFEDIPINE [Suspect]
     Dosage: 80 MG, PER ORAL
     Route: 048
  5. TRICHLORMETHIAZIDE [Suspect]
     Dosage: 2 MG, PER ORAL
     Route: 048
  6. HALCION [Suspect]
     Dosage: 0.25 MG, PER ORAL
     Route: 048

REACTIONS (1)
  - CARDIAC ARREST [None]
